FAERS Safety Report 9556865 (Version 2)
Quarter: 2013Q3

REPORT INFORMATION
  Report Type: Spontaneous
  Country: JP (occurrence: JP)
  Receive Date: 20130926
  Receipt Date: 20130926
  Transmission Date: 20140515
  Serious: Yes (Hospitalization)
  Sender: FDA-Public Use
  Company Number: JP-MERCK-1212JPN000040

PATIENT
  Age: 67 Year
  Sex: Female

DRUGS (2)
  1. BONALON [Suspect]
     Dosage: UNK
     Route: 048
  2. ZOMETA [Suspect]
     Indication: METASTASES TO BONE
     Route: 042

REACTIONS (1)
  - Femur fracture [Unknown]
